FAERS Safety Report 7735589-8 (Version None)
Quarter: 2011Q3

REPORT INFORMATION
  Report Type: 
  Country: None (occurrence: None)
  Receive Date: 20110907
  Receipt Date: 20110830
  Transmission Date: 20111222
  Serious: Yes (Hospitalization)
  Sender: FDA-Public Use
  Company Number: AU-B.I. PHARMACEUTICALS,INC./RIDGEFIELD-2011-AU-00985AU

PATIENT
  Sex: Female

DRUGS (6)
  1. TRAMADOL HCL [Concomitant]
     Dosage: 150 MG
  2. IRBESARTAN [Concomitant]
     Dosage: 300 MG
  3. PANTOPRAZOLE [Concomitant]
     Dosage: 40 MG
  4. CARVEDILOL [Concomitant]
     Dosage: 12.5 MG
  5. PRADAXA [Suspect]
     Indication: ATRIAL FIBRILLATION
     Dosage: 220 MG
     Dates: start: 20110707
  6. FUROSEMIDE [Concomitant]
     Dosage: 40 MG TWICE A WEEK

REACTIONS (1)
  - PLEURITIC PAIN [None]
